FAERS Safety Report 16564526 (Version 1)
Quarter: 2019Q3

REPORT INFORMATION
  Report Type: Report from Study
  Country: None (occurrence: US)
  Receive Date: 20190712
  Receipt Date: 20190712
  Transmission Date: 20191004
  Serious: No
  Sender: FDA-Public Use
  Company Number: US-JIANGSU HENGRUI MEDICINE CO., LTD.-2070714

PATIENT
  Age: 56 Year
  Sex: Male

DRUGS (1)
  1. CYCLOPHOSPHAMIDE FOR INJECTION USP, 500 MG, 1 G AND 2 G PER SINGLE-DOS [Suspect]
     Active Substance: CYCLOPHOSPHAMIDE
     Indication: ACUTE KIDNEY INJURY
     Route: 048

REACTIONS (1)
  - Stomatitis [Not Recovered/Not Resolved]
